FAERS Safety Report 5176901-6 (Version None)
Quarter: 2006Q4

REPORT INFORMATION
  Report Type: 
  Country: None (occurrence: None)
  Receive Date: 20061212
  Receipt Date: 20061212
  Transmission Date: 20070319
  Serious: Yes (Other)
  Sender: FDA-Public Use
  Company Number: None

PATIENT
  Sex: Male
  Weight: 89.8122 kg

DRUGS (1)
  1. LISINOPRIL AND HYDROCHLOROTHIAZIDE [Suspect]
     Indication: HYPERTENSION
     Dosage: 20/25 QD ORAL
     Route: 048
     Dates: start: 20061101

REACTIONS (4)
  - CHEST PAIN [None]
  - COUGH [None]
  - FATIGUE [None]
  - HEADACHE [None]
